FAERS Safety Report 18144557 (Version 3)
Quarter: 2020Q3

REPORT INFORMATION
  Report Type: Spontaneous
  Country: JP (occurrence: JP)
  Receive Date: 20200813
  Receipt Date: 20200908
  Transmission Date: 20201103
  Serious: Yes (Hospitalization)
  Sender: FDA-Public Use
  Company Number: JP-TAIHO ONCOLOGY  INC-JPTT200180

PATIENT
  Age: 80 Year
  Sex: Male
  Weight: 71.35 kg

DRUGS (10)
  1. VEMLIDY [Concomitant]
     Active Substance: TENOFOVIR ALAFENAMIDE FUMARATE
     Indication: CHRONIC HEPATITIS B
     Route: 048
     Dates: start: 20180731, end: 20200713
  2. LONSURF [Suspect]
     Active Substance: TIPIRACIL HYDROCHLORIDE\TRIFLURIDINE
     Indication: COLON CANCER METASTATIC
     Dosage: ON DAYS 1?5 AND 8?12 OF EACH 28?DAY CYCLE, 10 DOSING DAYS
     Route: 048
     Dates: start: 20200608
  3. EQUA [Concomitant]
     Active Substance: VILDAGLIPTIN
     Indication: DIABETES MELLITUS
     Route: 048
     Dates: start: 20191115, end: 20200713
  4. CELECOX [Concomitant]
     Active Substance: CELECOXIB
     Indication: ARTHRALGIA
     Route: 048
     Dates: start: 20190402, end: 20200713
  5. LONSURF [Suspect]
     Active Substance: TIPIRACIL HYDROCHLORIDE\TRIFLURIDINE
     Dosage: ON DAYS 1?5 AND 8?12 OF EACH 28?DAY CYCLE, 5 DOSING DAYS
     Route: 048
     Dates: start: 20200706
  6. FORXIGA [Concomitant]
     Active Substance: DAPAGLIFLOZIN
     Indication: DIABETES MELLITUS
     Route: 048
     Dates: start: 20191217, end: 20200713
  7. PREMINENT [Concomitant]
     Active Substance: HYDROCHLOROTHIAZIDE\LOSARTAN POTASSIUM
     Indication: HYPERTENSION
     Route: 048
     Dates: start: 20151127, end: 20200713
  8. AVASTIN [Concomitant]
     Active Substance: BEVACIZUMAB
     Indication: COLON CANCER METASTATIC
     Dosage: 3 DOSING DAYS
     Route: 041
     Dates: start: 20200608
  9. URSODEOXYCHOLIC ACID [Concomitant]
     Active Substance: URSODIOL
     Indication: LIVER DISORDER
     Route: 048
     Dates: start: 20151127, end: 20200713
  10. AMLODIPINE [Concomitant]
     Active Substance: AMLODIPINE BESYLATE
     Indication: HYPERTENSION
     Route: 048
     Dates: start: 20170329, end: 20200713

REACTIONS (4)
  - Enterocolitis [Recovering/Resolving]
  - Myelosuppression [Recovered/Resolved]
  - Haematochezia [Recovering/Resolving]
  - Anastomotic haemorrhage [Recovered/Resolved]

NARRATIVE: CASE EVENT DATE: 20200615
